FAERS Safety Report 7112214-0 (Version None)
Quarter: 2010Q4

REPORT INFORMATION
  Report Type: 
  Country: None (occurrence: None)
  Receive Date: 20101119
  Receipt Date: 20100315
  Transmission Date: 20110411
  Serious: No
  Sender: FDA-Public Use
  Company Number: A0850246A

PATIENT
  Sex: Male

DRUGS (1)
  1. AVODART [Suspect]
     Route: 048

REACTIONS (1)
  - SEMEN VOLUME DECREASED [None]
